FAERS Safety Report 11231066 (Version 4)
Quarter: 2015Q3

REPORT INFORMATION
  Report Type: Spontaneous
  Country: US (occurrence: US)
  Receive Date: 20150701
  Receipt Date: 20150825
  Transmission Date: 20151125
  Serious: Yes (Death)
  Sender: FDA-Public Use
  Company Number: US-PFIZER INC-2015217688

PATIENT
  Age: 73 Year
  Sex: Female

DRUGS (1)
  1. AROMASIN [Suspect]
     Active Substance: EXEMESTANE
     Dosage: UNK

REACTIONS (1)
  - Cardiac failure chronic [Fatal]

NARRATIVE: CASE EVENT DATE: 2015
